FAERS Safety Report 9653627 (Version 3)
Quarter: 2014Q2

REPORT INFORMATION
  Report Type: Spontaneous
  Country: US (occurrence: None)
  Receive Date: 20131028
  Receipt Date: 20140529
  Transmission Date: 20141212
  Serious: Yes (Hospitalization, Other)
  Sender: FDA-Public Use
  Company Number: ADR-2013-01935

PATIENT
  Age: 67 Year
  Sex: Female

DRUGS (10)
  1. BACLOFEN [Suspect]
     Indication: PAIN
     Dosage: 525MCG/DAY
  2. MARCAINE [Suspect]
  3. SUFENTA [Suspect]
  4. ASPIRIN [Suspect]
  5. FENOFIBRATE [Suspect]
  6. LOSARTAN [Suspect]
  7. ALPRAZOLAM [Suspect]
  8. HYDROCODONE [Suspect]
  9. LYRICA [Suspect]
  10. ADVAIR INHALER [Suspect]

REACTIONS (8)
  - Overdose [None]
  - Feeling abnormal [None]
  - Device malfunction [None]
  - Loss of consciousness [None]
  - Feeling hot [None]
  - Paraesthesia [None]
  - Feeling hot [None]
  - Euphoric mood [None]
